FAERS Safety Report 12332058 (Version 3)
Quarter: 2017Q2

REPORT INFORMATION
  Report Type: Spontaneous
  Country: US (occurrence: US)
  Receive Date: 20160504
  Receipt Date: 20170420
  Transmission Date: 20170830
  Serious: No
  Sender: FDA-Public Use
  Company Number: US-PFIZER INC-2016242120

PATIENT
  Age: 74 Year
  Sex: Female

DRUGS (2)
  1. IBRANCE [Suspect]
     Active Substance: PALBOCICLIB
     Indication: BREAST CANCER FEMALE
     Dosage: 100 MG, CYCLIC (DAILY FOR 21 DAYS, HOLD FOR 7 DAYS)
     Route: 048
     Dates: start: 20150813
  2. IBRANCE [Suspect]
     Active Substance: PALBOCICLIB
     Dosage: 100 MG, CYCLIC (QD X21 DAYS OFF 7 DAYS)
     Route: 048
     Dates: start: 20160511

REACTIONS (8)
  - Nausea [Unknown]
  - Hypoaesthesia [Unknown]
  - Alopecia [Unknown]
  - Urinary incontinence [Unknown]
  - White blood cell count decreased [Unknown]
  - Asthenia [Unknown]
  - Neuropathy peripheral [Unknown]
  - Fatigue [Unknown]

NARRATIVE: CASE EVENT DATE: 20161122
